FAERS Safety Report 10084128 (Version 1)
Quarter: 2014Q2

REPORT INFORMATION
  Report Type: Spontaneous
  Country: IT (occurrence: None)
  Receive Date: 20140415
  Receipt Date: 20140415
  Transmission Date: 20141212
  Serious: Yes (Death)
  Sender: FDA-Public Use
  Company Number: COR_00040_2014

PATIENT
  Age: 12 Month
  Sex: Female

DRUGS (2)
  1. CARBOPLATIN [Suspect]
     Indication: GLIOMA
     Dosage: CUMLATIVE DOSE
  2. CARBOPLATIN [Suspect]
     Indication: CENTRAL NERVOUS SYSTEM LESION
     Dosage: CUMLATIVE DOSE

REACTIONS (4)
  - Inappropriate antidiuretic hormone secretion [None]
  - Haematotoxicity [None]
  - Hypersensitivity [None]
  - Disease progression [None]
